FAERS Safety Report 6039945-8 (Version None)
Quarter: 2009Q1

REPORT INFORMATION
  Report Type: 
  Country: None (occurrence: None)
  Receive Date: 20090116
  Receipt Date: 20071105
  Transmission Date: 20090719
  Serious: No
  Sender: FDA-Public Use
  Company Number: US-BRISTOL-MYERS SQUIBB COMPANY-13945951

PATIENT
  Age: 47 Year
  Sex: Female

DRUGS (7)
  1. ABILIFY [Suspect]
     Indication: ANXIETY
     Route: 048
  2. CYMBALTA [Concomitant]
  3. XANAX [Concomitant]
  4. REQUIP [Concomitant]
  5. TOPAMAX [Concomitant]
  6. OXYCODONE [Concomitant]
  7. AMBIEN [Concomitant]

REACTIONS (1)
  - PATHOLOGICAL GAMBLING [None]
